FAERS Safety Report 12181587 (Version 1)
Quarter: 2016Q1

REPORT INFORMATION
  Report Type: Report from Study
  Country: US (occurrence: US)
  Receive Date: 20160315
  Receipt Date: 20160315
  Transmission Date: 20160526
  Serious: Yes (Hospitalization, Other)
  Sender: FDA-Public Use
  Company Number: US-GILEAD-2016-0203036

PATIENT
  Age: 72 Year
  Sex: Male

DRUGS (1)
  1. RANOLAZINE [Suspect]
     Active Substance: RANOLAZINE
     Indication: ANGINA PECTORIS
     Dosage: UNK
     Route: 048
     Dates: start: 2010

REACTIONS (5)
  - Spinal operation [Unknown]
  - Surgery [Unknown]
  - Hip arthroplasty [Unknown]
  - Cardiac operation [Unknown]
  - Vascular graft [Unknown]

NARRATIVE: CASE EVENT DATE: 201405
